FAERS Safety Report 21895770 (Version 2)
Quarter: 2023Q1

REPORT INFORMATION
  Report Type: Spontaneous
  Country: CA (occurrence: CA)
  Receive Date: 20230123
  Receipt Date: 20230323
  Transmission Date: 20230417
  Serious: Yes (Death, Hospitalization, Other)
  Sender: FDA-Public Use
  Company Number: CA-BAXTER-2023BAX010902

PATIENT

DRUGS (28)
  1. PROPOFOL [Suspect]
     Active Substance: PROPOFOL
     Indication: Foetal exposure during pregnancy
     Dosage: AT AN UNSPECIFIED DOSE AND FREQUENCY
     Route: 065
  2. PROPOFOL [Suspect]
     Active Substance: PROPOFOL
     Dosage: 200 MILLIGRAM, 1 EVERY 1 HOUR, AT AN UNSPECIFIED DOSE AND FREQUENCY
     Route: 065
  3. DEXTROSE [Suspect]
     Active Substance: DEXTROSE
     Indication: Foetal exposure during pregnancy
     Dosage: 50 ML, (DOSAGE FORM: NOT SPECIFIED)
     Route: 042
  4. DEXTROSE [Suspect]
     Active Substance: DEXTROSE
     Dosage: AT AN UNSPECIFIED DOSE AND FREQUENCY
     Route: 065
  5. DOPAMINE [Suspect]
     Active Substance: DOPAMINE HYDROCHLORIDE
     Route: 065
  6. MAGNESIUM SULFATE [Suspect]
     Active Substance: MAGNESIUM SULFATE
     Indication: Foetal exposure during pregnancy
     Dosage: 2 GRAM, (DOSAGE FORM: NOT SPECIFIED)
     Route: 065
  7. MAGNESIUM SULFATE [Suspect]
     Active Substance: MAGNESIUM SULFATE
     Dosage: 2 MILLIGRAM, (DOSAGE FORM: NOT SPECIFIED)
     Route: 065
  8. LORAZEPAM [Suspect]
     Active Substance: LORAZEPAM
     Dosage: 2 MILLIGRAM
     Route: 065
  9. ATIVAN [Suspect]
     Active Substance: LORAZEPAM
     Indication: Foetal exposure during pregnancy
     Dosage: 2 MILLIGRAM, (DOSAGE FORM: NOT SPECIFIED)
     Route: 065
  10. CALCIUM CHLORIDE [Suspect]
     Active Substance: CALCIUM CHLORIDE
     Indication: Product used for unknown indication
     Dosage: 1 GRAM, (DOSAGE FORM: NOT SPECIFIED)
     Route: 065
  11. DIAZEPAM [Suspect]
     Active Substance: DIAZEPAM
     Indication: Foetal exposure during pregnancy
     Dosage: AT AN UNSPECIFIED DOSE AND FREQUENCY, (DOSAGE FORM: NOT SPECIFIED)
     Route: 065
  12. DIAZEPAM [Suspect]
     Active Substance: DIAZEPAM
     Dosage: 10 MILLIGRAM, (DOSAGE FORM: NOT SPECIFIED)
     Route: 065
  13. DEXTROSE [Suspect]
     Active Substance: DEXTROSE
     Indication: Product used for unknown indication
     Dosage: 50 ML, (DOSAGE FORM: NOT SPECIFIED)
     Route: 065
  14. LORAZEPAM [Suspect]
     Active Substance: LORAZEPAM
     Dosage: 2 MG, (DOSAGE FORM: NOT SPECIFIED)
     Route: 065
  15. LORAZEPAM [Suspect]
     Active Substance: LORAZEPAM
     Dosage: AT AN UNSPECIFIED DOSE AND FREQUENCY, (DOSAGE FORM: NOT SPECIFIED)
     Route: 065
  16. METOCLOPRAMIDE [Suspect]
     Active Substance: METOCLOPRAMIDE
     Indication: Foetal exposure during pregnancy
     Dosage: 10 MG
     Route: 065
  17. MIDAZOLAM [Suspect]
     Active Substance: MIDAZOLAM
     Indication: Foetal exposure during pregnancy
     Dosage: 3 MG
     Route: 065
  18. MIDAZOLAM HYDROCHLORIDE [Suspect]
     Active Substance: MIDAZOLAM HYDROCHLORIDE
     Dosage: 3 MILLIGRAM
     Route: 065
  19. PAROXETINE HYDROCHLORIDE [Suspect]
     Active Substance: PAROXETINE HYDROCHLORIDE
     Indication: Foetal exposure during pregnancy
     Dosage: UNK
     Route: 065
  20. PHENYTOIN [Suspect]
     Active Substance: PHENYTOIN
     Indication: Foetal exposure during pregnancy
     Dosage: 1 GRAM
     Route: 065
  21. SODIUM CITRATE [Suspect]
     Active Substance: SODIUM CITRATE
     Indication: Foetal exposure during pregnancy
     Dosage: 30 ML, (DOSAGE FORM: NOT SPECIFIED)
     Route: 065
  22. PHENYLEPHRINE [Suspect]
     Active Substance: PHENYLEPHRINE HYDROCHLORIDE
     Dosage: AT AN UNSPECIFIED DOSE AND FREQUENCY
     Route: 065
  23. SUCCINYLCHOLINE [Suspect]
     Active Substance: SUCCINYLCHOLINE
     Indication: Foetal exposure during pregnancy
     Dosage: 100 MILLLIGRAM
     Route: 042
  24. SUCCINYLCHOLINE CHLORIDE [Suspect]
     Active Substance: SUCCINYLCHOLINE CHLORIDE
     Dosage: 100 MILLIGRAM
     Route: 065
  25. THIOPENTAL SODIUM [Suspect]
     Active Substance: THIOPENTAL SODIUM
     Indication: Foetal exposure during pregnancy
     Dosage: DOSAGE FORM: NOT SPECIFIED
     Route: 065
  26. THIOPENTAL SODIUM [Suspect]
     Active Substance: THIOPENTAL SODIUM
     Dosage: 300 MG, 1 EVERY 1 HOUR
     Route: 065
  27. THIOPENTAL SODIUM [Suspect]
     Active Substance: THIOPENTAL SODIUM
     Dosage: 100 MILLIGRAM
     Route: 065
  28. THIOPENTAL SODIUM [Suspect]
     Active Substance: THIOPENTAL SODIUM
     Dosage: 250 MILLIGRAM
     Route: 065

REACTIONS (2)
  - Foetal death [Fatal]
  - Foetal exposure during pregnancy [Fatal]
